FAERS Safety Report 17850993 (Version 2)
Quarter: 2020Q2

REPORT INFORMATION
  Report Type: Report from Study
  Country: FR (occurrence: FR)
  Receive Date: 20200602
  Receipt Date: 20200605
  Transmission Date: 20200714
  Serious: Yes (Death, Hospitalization)
  Sender: FDA-Public Use
  Company Number: FR-TAKEDA-2020TUS024513

PATIENT
  Age: 78 Year
  Sex: Female

DRUGS (5)
  1. BENDAMUSTINE [Suspect]
     Active Substance: BENDAMUSTINE
     Indication: PLASMA CELL MYELOMA
     Dosage: 70 MILLIGRAM/SQ. METER, QD
     Route: 041
     Dates: start: 20110607, end: 20110808
  2. DUROGESIC [Concomitant]
     Active Substance: FENTANYL
     Dosage: UNK
     Route: 065
     Dates: start: 20100402
  3. BORTEZOMIB. [Suspect]
     Active Substance: BORTEZOMIB
     Indication: PLASMA CELL MYELOMA
     Dosage: 0.7 MICROGRAM/SQ. METER
     Route: 065
     Dates: start: 20110607, end: 20110808
  4. LYTOS [Concomitant]
     Active Substance: CLODRONATE DISODIUM
     Dosage: UNK
     Route: 065
     Dates: start: 20110307
  5. DEXAMETHASONE. [Suspect]
     Active Substance: DEXAMETHASONE
     Indication: PLASMA CELL MYELOMA
     Dosage: 20 MILLIGRAM
     Route: 048
     Dates: start: 20110607, end: 20110808

REACTIONS (2)
  - Dehydration [Fatal]
  - Diarrhoea [Fatal]

NARRATIVE: CASE EVENT DATE: 20110805
